FAERS Safety Report 8923507 (Version 1)
Quarter: 2012Q4

REPORT INFORMATION
  Report Type: Spontaneous
  Country: US (occurrence: None)
  Receive Date: 20121115
  Receipt Date: 20121115
  Transmission Date: 20130627
  Serious: No
  Sender: FDA-Public Use
  Company Number: None

PATIENT
  Age: 42 Year
  Sex: Female

DRUGS (1)
  1. METHYLDOPA [Suspect]
     Dates: start: 20100826, end: 20101202

REACTIONS (8)
  - Fatigue [None]
  - Nausea [None]
  - Hepatic necrosis [None]
  - Abdominal distension [None]
  - Lethargy [None]
  - Jaundice [None]
  - Hepatitis [None]
  - Headache [None]
